FAERS Safety Report 7303848-9 (Version None)
Quarter: 2011Q1

REPORT INFORMATION
  Report Type: 
  Country: None (occurrence: None)
  Receive Date: 20110221
  Receipt Date: 20110215
  Transmission Date: 20110831
  Serious: Yes (Other)
  Sender: FDA-Public Use
  Company Number: A0906915A

PATIENT
  Age: 67 Year
  Sex: Female

DRUGS (5)
  1. CELEXA [Concomitant]
  2. ADVAIR DISKUS 100/50 [Suspect]
     Indication: ASTHMA
     Dosage: 1PUFF TWICE PER DAY
     Route: 055
  3. PROVENTIL [Concomitant]
  4. PLAVIX [Concomitant]
  5. TOPROL-XL [Concomitant]

REACTIONS (4)
  - INHALATION THERAPY [None]
  - PRODUCT QUALITY ISSUE [None]
  - ASTHMA [None]
  - COUGH [None]
